FAERS Safety Report 6142494-X (Version None)
Quarter: 2009Q2

REPORT INFORMATION
  Report Type: 
  Country: None (occurrence: None)
  Receive Date: 20090403
  Receipt Date: 20090325
  Transmission Date: 20091009
  Serious: Yes (Hospitalization)
  Sender: FDA-Public Use
  Company Number: BR-BAYER-200914372LA

PATIENT
  Age: 52 Year
  Sex: Female

DRUGS (9)
  1. BETAFERON [Suspect]
     Indication: MULTIPLE SCLEROSIS
     Dosage: BETAJECT
     Route: 058
     Dates: start: 20050101, end: 20090310
  2. BETAFERON [Suspect]
     Dosage: BETAJECT
     Route: 058
     Dates: start: 20090316
  3. ACETAMINOPHEN [Concomitant]
     Indication: PAIN
     Dosage: UNIT DOSE: 750 MG
     Route: 048
     Dates: start: 20050101
  4. REGULAR INSULIN [Concomitant]
     Indication: DIABETES MELLITUS
     Route: 058
  5. ATORVASTATIN CALCIUM [Concomitant]
     Indication: BLOOD CHOLESTEROL ABNORMAL
     Dosage: UNIT DOSE: 40 MG
     Route: 048
     Dates: start: 20080101
  6. CLOPIDOGREL BISULFATE [Concomitant]
     Indication: CARDIAC DISORDER
     Route: 048
     Dates: start: 20080101
  7. ACETYLSALICYLIC ACID [Concomitant]
     Indication: ISCHAEMIC HEART DISEASE PROPHYLAXIS
     Dosage: 1 TABLET AT LUNCH TIME
     Route: 048
     Dates: start: 20080101
  8. INSULATARD NPH HUMAN [Concomitant]
     Route: 058
     Dates: start: 20000101, end: 20090301
  9. INSULATARD NPH HUMAN [Concomitant]
     Route: 058
     Dates: start: 20090301

REACTIONS (3)
  - ASTHENIA [None]
  - DIZZINESS [None]
  - HYPOGLYCAEMIA [None]
